FAERS Safety Report 12108566 (Version 13)
Quarter: 2016Q4

REPORT INFORMATION
  Report Type: Report from Study
  Country: CA (occurrence: CA)
  Receive Date: 20160224
  Receipt Date: 20161221
  Transmission Date: 20170206
  Serious: Yes (Other)
  Sender: FDA-Public Use
  Company Number: CA-BRISTOL-MYERS SQUIBB COMPANY-BMS-2016-000580

PATIENT
  Age: 56 Year
  Sex: Female

DRUGS (4)
  1. ABATACEPT [Suspect]
     Active Substance: ABATACEPT
     Indication: RHEUMATOID ARTHRITIS
     Dosage: 125 MG, QWK
     Route: 058
     Dates: start: 20151221
  2. PREDNISONE. [Concomitant]
     Active Substance: PREDNISONE
     Indication: PRODUCT USED FOR UNKNOWN INDICATION
     Dosage: UNK
     Route: 065
  3. AMILORIDE [Concomitant]
     Active Substance: AMILORIDE
     Indication: PRODUCT USED FOR UNKNOWN INDICATION
     Dosage: UNK
     Route: 065
  4. VENLAFAXINE [Concomitant]
     Active Substance: VENLAFAXINE HYDROCHLORIDE
     Indication: PRODUCT USED FOR UNKNOWN INDICATION
     Dosage: UNK
     Route: 065

REACTIONS (17)
  - Nervous system disorder [Unknown]
  - Contusion [Unknown]
  - Muscular weakness [Unknown]
  - Cyst [Unknown]
  - Carpal tunnel syndrome [Unknown]
  - Arthralgia [Unknown]
  - Pain in extremity [Unknown]
  - Mobility decreased [Unknown]
  - Drug dose omission [Unknown]
  - Balance disorder [Unknown]
  - Heart rate increased [Unknown]
  - Fall [Unknown]
  - Ear infection [Recovering/Resolving]
  - Respiratory tract infection [Recovering/Resolving]
  - Local swelling [Unknown]
  - Joint swelling [Unknown]
  - Arthropathy [Unknown]

NARRATIVE: CASE EVENT DATE: 20151230
